FAERS Safety Report 22650361 (Version 1)
Quarter: 2023Q2

REPORT INFORMATION
  Report Type: Spontaneous
  Country: US (occurrence: US)
  Receive Date: 20230628
  Receipt Date: 20230628
  Transmission Date: 20230722
  Serious: No
  Sender: FDA-Public Use
  Company Number: US-MAYNE PHARMA-2022TMD00815

PATIENT
  Sex: Female
  Weight: 60.317 kg

DRUGS (3)
  1. IMVEXXY [Suspect]
     Active Substance: ESTRADIOL
     Indication: Dyspareunia
     Dosage: 1 DOSAGE FORM, 2X/WEEK BEFORE BED
     Route: 067
     Dates: start: 202001, end: 2020
  2. IMVEXXY [Suspect]
     Active Substance: ESTRADIOL
     Dosage: 1 DOSAGE FORM, 1X/WEEK BEFORE BED
     Route: 067
     Dates: start: 2020, end: 2020
  3. SYNTHROID [Concomitant]
     Active Substance: LEVOTHYROXINE SODIUM

REACTIONS (2)
  - Memory impairment [Recovered/Resolved]
  - Intentional product misuse [Recovered/Resolved]

NARRATIVE: CASE EVENT DATE: 20200101
